FAERS Safety Report 10510039 (Version 1)
Quarter: 2014Q4

REPORT INFORMATION
  Report Type: Spontaneous
  Country: US (occurrence: None)
  Receive Date: 20141009
  Receipt Date: 20141009
  Transmission Date: 20150528
  Serious: Yes (Other)
  Sender: FDA-Public Use
  Company Number: None

PATIENT
  Sex: Male
  Weight: 14.06 kg

DRUGS (1)
  1. DEPAKOTE SPRINKLES GENERIC [Suspect]
     Active Substance: DIVALPROEX SODIUM
     Dosage: 1 TABLET BID ORALLY
     Route: 048

REACTIONS (1)
  - Seizure [None]
